FAERS Safety Report 10498495 (Version 2)
Quarter: 2014Q4

REPORT INFORMATION
  Report Type: Report from Study
  Country: IT (occurrence: IT)
  Receive Date: 20141006
  Receipt Date: 20141017
  Transmission Date: 20150528
  Serious: Yes (Death)
  Sender: FDA-Public Use
  Company Number: IT-BAYER-2014-146876

PATIENT
  Sex: Female

DRUGS (7)
  1. SORAFENIB (RAF KINASE INHIBITOR) [Suspect]
     Active Substance: SORAFENIB
     Indication: HODGKIN^S DISEASE RECURRENT
     Dosage: 400 MG, BID
     Route: 048
  2. SORAFENIB (RAF KINASE INHIBITOR) [Suspect]
     Active Substance: SORAFENIB
     Indication: HODGKIN^S DISEASE RECURRENT
     Dosage: UNK
     Dates: start: 200712, end: 200808
  3. WARFARIN [Concomitant]
     Active Substance: WARFARIN
     Indication: THROMBOSIS PROPHYLAXIS
     Dosage: 1.25 MG/DAY
     Dates: start: 20081128
  4. PERIFOSINE [Suspect]
     Active Substance: PERIFOSINE
     Indication: HODGKIN^S DISEASE RECURRENT
     Dosage: 50 UNK, BID
     Route: 048
  5. PERIFOSINE [Suspect]
     Active Substance: PERIFOSINE
     Indication: HODGKIN^S DISEASE RECURRENT
     Dosage: 50 MG, BID
     Route: 048
  6. SORAFENIB (RAF KINASE INHIBITOR) [Suspect]
     Active Substance: SORAFENIB
     Indication: HODGKIN^S DISEASE RECURRENT
     Dosage: UNK
     Dates: start: 20090402, end: 20090819
  7. VINORELBINE [Concomitant]
     Active Substance: VINORELBINE\VINORELBINE TARTRATE
     Indication: HODGKIN^S DISEASE
     Dosage: UNK
     Dates: start: 200809, end: 200810

REACTIONS (3)
  - Pneumonitis [Fatal]
  - Multi-organ failure [Fatal]
  - Bone marrow failure [Fatal]

NARRATIVE: CASE EVENT DATE: 20090825
